FAERS Safety Report 17579119 (Version 4)
Quarter: 2020Q3

REPORT INFORMATION
  Report Type: Other
  Country: US (occurrence: US)
  Receive Date: 20200325
  Receipt Date: 20200819
  Transmission Date: 20201102
  Serious: Yes (Other)
  Sender: FDA-Public Use
  Company Number: US-ROCHE-2520464

PATIENT

DRUGS (2)
  1. BEVACIZUMAB. [Suspect]
     Active Substance: BEVACIZUMAB
     Indication: HEREDITARY HAEMORRHAGIC TELANGIECTASIA
     Dosage: EVERY 2 WEEKS FOR THE FIRST 2 MONTHS, THEN MONTHLY FOR 4 MONTHS
     Route: 042
  2. BEVACIZUMAB. [Suspect]
     Active Substance: BEVACIZUMAB
     Dosage: MAINTENANCE THERAPY
     Route: 042

REACTIONS (25)
  - Cerebrovascular accident [Unknown]
  - Off label use [Unknown]
  - Proteinuria [Unknown]
  - Hypertension [Unknown]
  - Transaminases increased [Unknown]
  - Headache [Unknown]
  - Dizziness [Unknown]
  - Dyspnoea [Unknown]
  - Abdominal discomfort [Unknown]
  - Skin ulcer [Unknown]
  - Blood alkaline phosphatase increased [Unknown]
  - Rash [Unknown]
  - Chest discomfort [Unknown]
  - Epistaxis [Unknown]
  - Oedema peripheral [Unknown]
  - Diarrhoea [Unknown]
  - Impaired healing [Unknown]
  - Myelosuppression [Unknown]
  - Arthralgia [Unknown]
  - Fatigue [Unknown]
  - Intentional product use issue [Unknown]
  - Myalgia [Unknown]
  - Abdominal pain [Unknown]
  - Embolism venous [Recovered/Resolved]
  - Staphylococcal skin infection [Unknown]
